FAERS Safety Report 6469909-1 (Version None)
Quarter: 2009Q4

REPORT INFORMATION
  Report Type: 
  Country: None (occurrence: None)
  Receive Date: 20091203
  Receipt Date: 20071002
  Transmission Date: 20100525
  Serious: Yes (Other)
  Sender: FDA-Public Use
  Company Number: US-ELI_LILLY_AND_COMPANY-US200710001530

PATIENT
  Sex: Male

DRUGS (5)
  1. BYETTA [Suspect]
     Indication: TYPE 2 DIABETES MELLITUS
     Dosage: 5 UG, 2/D
     Route: 058
     Dates: start: 20070401, end: 20070501
  2. BYETTA [Suspect]
     Dosage: 10 UG, 2/D
     Route: 058
     Dates: start: 20070501
  3. INSULIN [Concomitant]
     Indication: DIABETES MELLITUS
     Dosage: 45 U, EACH MORNING
     Route: 058
     Dates: start: 20061001, end: 20070401
  4. INSULIN [Concomitant]
     Dosage: 40 U, EACH EVENING
     Route: 058
     Dates: start: 20061001, end: 20070401
  5. INSULIN [Concomitant]
     Dosage: 30 U, 2/D
     Route: 058
     Dates: start: 20070401

REACTIONS (6)
  - COORDINATION ABNORMAL [None]
  - INJECTION SITE URTICARIA [None]
  - IRRITABILITY [None]
  - PROSTATIC SPECIFIC ANTIGEN INCREASED [None]
  - RADIOTHERAPY TO PROSTATE [None]
  - URTICARIA [None]
